FAERS Safety Report 4366075-3 (Version None)
Quarter: 2004Q2

REPORT INFORMATION
  Report Type: 
  Country: None (occurrence: None)
  Receive Date: 20040524
  Receipt Date: 20040210
  Transmission Date: 20050107
  Serious: No
  Sender: FDA-Public Use
  Company Number: SU-2004-002126

PATIENT
  Age: 85 Year
  Sex: Male
  Weight: 81.1939 kg

DRUGS (3)
  1. BENICAR [Suspect]
     Indication: HYPERTENSION
     Dosage: 20 MG QD PO
     Route: 048
     Dates: start: 20030811, end: 20040209
  2. SYNTRHOID [Concomitant]
  3. ASPIRIN [Concomitant]

REACTIONS (1)
  - BLOOD POTASSIUM INCREASED [None]
